FAERS Safety Report 21549935 (Version 2)
Quarter: 2022Q4

REPORT INFORMATION
  Report Type: Report from Study
  Country: US (occurrence: US)
  Receive Date: 20221103
  Receipt Date: 20221118
  Transmission Date: 20230113
  Serious: No
  Sender: FDA-Public Use
  Company Number: US-002147023-NVSC2022US248158

PATIENT
  Sex: Female

DRUGS (1)
  1. PIQRAY [Suspect]
     Active Substance: ALPELISIB
     Indication: Product used for unknown indication
     Dosage: UNK
     Route: 065

REACTIONS (8)
  - Illness [Unknown]
  - Rash [Unknown]
  - Blister [Unknown]
  - Pyrexia [Unknown]
  - Stomatitis [Unknown]
  - Blood glucose increased [Unknown]
  - Hepatic enzyme abnormal [Unknown]
  - Joint swelling [Unknown]
